FAERS Safety Report 11561048 (Version 1)
Quarter: 2015Q3

REPORT INFORMATION
  Report Type: Spontaneous
  Country: US (occurrence: US)
  Receive Date: 20150916
  Receipt Date: 20150916
  Transmission Date: 20151125
  Serious: No
  Sender: FDA-Public Use
  Company Number: US-ELI_LILLY_AND_COMPANY-US200810003850

PATIENT
  Age: 56 Year
  Sex: Female

DRUGS (4)
  1. FORTEO [Suspect]
     Active Substance: TERIPARATIDE
  2. FORTEO [Suspect]
     Active Substance: TERIPARATIDE
     Indication: OSTEOPOROSIS
     Dosage: 20 UG, DAILY (1/D)
     Dates: start: 20080807
  3. ATENOLOL. [Concomitant]
     Active Substance: ATENOLOL
     Dosage: 25 MG, DAILY (1/D)
  4. PROTONIX [Concomitant]
     Active Substance: PANTOPRAZOLE SODIUM
     Dosage: 40 MG, DAILY (1/D)

REACTIONS (15)
  - Throat tightness [Unknown]
  - Dyspepsia [Unknown]
  - Flank pain [Unknown]
  - Weight decreased [Unknown]
  - Feeling cold [Unknown]
  - Vomiting [Not Recovered/Not Resolved]
  - Product contamination physical [Unknown]
  - Decreased appetite [Unknown]
  - Vision blurred [Unknown]
  - Lacrimation increased [Unknown]
  - Anxiety [Unknown]
  - Nausea [Unknown]
  - Dysphonia [Unknown]
  - Rhinorrhoea [Unknown]
  - Poor quality drug administered [Unknown]

NARRATIVE: CASE EVENT DATE: 20080923
